FAERS Safety Report 23116086 (Version 3)
Quarter: 2024Q1

REPORT INFORMATION
  Report Type: Spontaneous
  Country: US (occurrence: US)
  Receive Date: 20231027
  Receipt Date: 20240208
  Transmission Date: 20240410
  Serious: No
  Sender: FDA-Public Use
  Company Number: US-GSKCCFUS-Case-01835836_AE-102611

PATIENT
  Age: 67 Year
  Sex: Female

DRUGS (1)
  1. NUCALA [Suspect]
     Active Substance: MEPOLIZUMAB
     Indication: Product used for unknown indication
     Dosage: 100 MG/ML 1X1ML

REACTIONS (4)
  - Accidental exposure to product [Unknown]
  - Incorrect dose administered [Unknown]
  - Product administration error [Unknown]
  - Product complaint [Unknown]

NARRATIVE: CASE EVENT DATE: 20231018
